FAERS Safety Report 8852761 (Version 1)
Quarter: 2012Q4

REPORT INFORMATION
  Report Type: 
  Country: US (occurrence: US)
  Receive Date: 20121022
  Receipt Date: 20121022
  Transmission Date: 20130627
  Serious: Yes (Hospitalization)
  Sender: FDA-Public Use
  Company Number: US-B.I. PHARMACEUTICALS,INC./RIDGEFIELD-2012-BP-25708BP

PATIENT
  Age: 50 Year
  Sex: Male
  Weight: 98.9 kg

DRUGS (9)
  1. MOBIC [Suspect]
     Indication: RHEUMATOID ARTHRITIS
     Dosage: 15 mg
     Route: 048
     Dates: start: 20110118
  2. TOFACITINIB CITRATE [Suspect]
     Indication: RHEUMATOID ARTHRITIS
     Dosage: 20 mg
     Route: 048
     Dates: start: 20101030, end: 20101201
  3. TOFACITINIB CITRATE [Suspect]
     Dosage: 10 mg
     Route: 048
     Dates: start: 20101202, end: 20120611
  4. LEVITRA [Concomitant]
     Indication: ERECTILE DYSFUNCTION
     Route: 048
     Dates: start: 2008
  5. ASCORBIC ACID, ERGOCALCIFEROL, FOLIC ACID, RETINOL, TOCOPHEROL, VIT B [Concomitant]
     Indication: SUPPLEMENTATION THERAPY
     Route: 048
     Dates: start: 2007
  6. FOLIC ACID [Concomitant]
     Indication: RHEUMATOID ARTHRITIS
     Dosage: 1 mg
     Route: 048
     Dates: start: 20080410
  7. GLUCOSAMINE [Concomitant]
     Indication: RHEUMATOID ARTHRITIS
     Dosage: 500 mg
     Route: 048
     Dates: start: 200904
  8. CHONDROITIN (CHONDROITIN SULFATE) [Concomitant]
     Indication: RHEUMATOID ARTHRITIS
     Dosage: 400 mg
     Route: 048
     Dates: start: 200904
  9. FISH OIL [Concomitant]
     Indication: DYSLIPIDAEMIA
     Route: 048
     Dates: start: 200904

REACTIONS (5)
  - Pancreatitis acute [Recovered/Resolved]
  - Gastrooesophageal reflux disease [Unknown]
  - Hyperglycaemia [Unknown]
  - Obesity [Unknown]
  - Sleep apnoea syndrome [Unknown]
